FAERS Safety Report 24840604 (Version 1)
Quarter: 2025Q1

REPORT INFORMATION
  Report Type: Report from Study
  Country: US (occurrence: US)
  Receive Date: 20250114
  Receipt Date: 20250114
  Transmission Date: 20250408
  Serious: Yes (Hospitalization, Other)
  Sender: EXELIXIS
  Company Number: US-EXELIXIS-EXL-2024-002012

PATIENT
  Age: 45 Year
  Sex: Male

DRUGS (10)
  1. CABOMETYX [Suspect]
     Active Substance: CABOZANTINIB S-MALATE
     Indication: Alveolar soft part sarcoma metastatic
     Dosage: 40 MG, QD
     Route: 048
     Dates: start: 202406
  2. CABOMETYX [Suspect]
     Active Substance: CABOZANTINIB S-MALATE
     Dosage: 40 MG, QD
     Route: 048
     Dates: start: 202408, end: 202410
  3. CABOMETYX [Suspect]
     Active Substance: CABOZANTINIB S-MALATE
     Dosage: 40 MG, QD
     Route: 048
     Dates: start: 202411, end: 20241204
  4. IPILIMUMAB [Suspect]
     Active Substance: IPILIMUMAB
     Indication: Alveolar soft part sarcoma metastatic
     Dates: start: 202408, end: 202410
  5. IPILIMUMAB [Suspect]
     Active Substance: IPILIMUMAB
     Dates: start: 202411, end: 20241204
  6. NIVOLUMAB [Suspect]
     Active Substance: NIVOLUMAB
     Indication: Alveolar soft part sarcoma metastatic
     Dates: start: 202408, end: 202410
  7. PEMBROLIZUMAB [Suspect]
     Active Substance: PEMBROLIZUMAB
     Indication: Alveolar soft part sarcoma metastatic
     Dates: start: 202309, end: 202404
  8. PEMBROLIZUMAB [Suspect]
     Active Substance: PEMBROLIZUMAB
     Dates: start: 202407, end: 202408
  9. SUNITINIB [Suspect]
     Active Substance: SUNITINIB
     Indication: Alveolar soft part sarcoma metastatic
     Dosage: 60 MG, QD
     Dates: start: 202309, end: 202404
  10. SUNITINIB [Suspect]
     Active Substance: SUNITINIB
     Dosage: 40 MG, QD
     Dates: start: 202407, end: 202408

REACTIONS (12)
  - Oxygen saturation decreased [Not Recovered/Not Resolved]
  - Dyspnoea [Not Recovered/Not Resolved]
  - Cough [Not Recovered/Not Resolved]
  - Radiotherapy to lung [Unknown]
  - Post procedural complication [Unknown]
  - Hepatotoxicity [Unknown]
  - Metastases to lung [Unknown]
  - Aspartate aminotransferase increased [Unknown]
  - Alanine aminotransferase increased [Unknown]
  - Blood thyroid stimulating hormone increased [Unknown]
  - Aphonia [Unknown]
  - Off label use [Unknown]

NARRATIVE: CASE EVENT DATE: 20240801
